FAERS Safety Report 13109690 (Version 1)
Quarter: 2017Q1

REPORT INFORMATION
  Report Type: Spontaneous
  Country: US (occurrence: US)
  Receive Date: 20170112
  Receipt Date: 20170112
  Transmission Date: 20170428
  Serious: No
  Sender: FDA-Public Use
  Company Number: US-ROCHE-1099279

PATIENT
  Sex: Male

DRUGS (4)
  1. GI COCKTAIL NOS [Concomitant]
     Route: 065
  2. PEPCID [Concomitant]
     Active Substance: FAMOTIDINE
     Route: 065
  3. ACTIVASE [Suspect]
     Active Substance: ALTEPLASE
     Indication: ACUTE MYOCARDIAL INFARCTION
     Route: 065
     Dates: start: 19931205
  4. MAALOX PRODUCT NOS [Concomitant]

REACTIONS (1)
  - Gingival bleeding [Unknown]
